FAERS Safety Report 24154556 (Version 1)
Quarter: 2024Q3

REPORT INFORMATION
  Report Type: Spontaneous
  Country: GB (occurrence: GB)
  Receive Date: 20240731
  Receipt Date: 20240731
  Transmission Date: 20241016
  Serious: Yes (Other)
  Sender: NOVO NORDISK
  Company Number: GB-MHRA-31204762

PATIENT
  Sex: Female

DRUGS (1)
  1. SEMAGLUTIDE [Suspect]
     Active Substance: SEMAGLUTIDE
     Indication: Product used for unknown indication
     Dosage: UNK

REACTIONS (11)
  - Injection site infection [Unknown]
  - Migraine [Unknown]
  - Dry skin [Unknown]
  - Injection site warmth [Unknown]
  - Injection site rash [Unknown]
  - Vomiting [Unknown]
  - Injection site bruising [Unknown]
  - Injection site erythema [Unknown]
  - Injection site swelling [Unknown]
  - Nausea [Unknown]
  - Drug ineffective [Unknown]
